FAERS Safety Report 12410159 (Version 2)
Quarter: 2016Q2

REPORT INFORMATION
  Report Type: Spontaneous
  Country: MX (occurrence: MX)
  Receive Date: 20160527
  Receipt Date: 20160602
  Transmission Date: 20160815
  Serious: Yes (Hospitalization)
  Sender: FDA-Public Use
  Company Number: MX-HORIZON-ACT-0126-2016

PATIENT
  Age: 5 Month
  Sex: Male
  Weight: 7.4 kg

DRUGS (5)
  1. ANFOTERICINA [Concomitant]
     Indication: ASPERGILLUS INFECTION
     Route: 042
     Dates: start: 20151231, end: 20160428
  2. IMUKIN [Suspect]
     Active Substance: INTERFERON GAMMA
     Indication: CHRONIC GRANULOMATOUS DISEASE
     Dosage: 100 MG / 0.5 ML DAILY (11 MG, 1 IN 1 D)
     Route: 058
     Dates: start: 20151231
  3. CASPOFUNGINA [Concomitant]
     Indication: ASPERGILLUS INFECTION
     Route: 042
     Dates: start: 20151231, end: 20160428
  4. HYDROXICLOROQUINA [Concomitant]
     Indication: ASPERGILLUS INFECTION
     Route: 048
     Dates: start: 20160302
  5. VORICONAZOLE. [Concomitant]
     Active Substance: VORICONAZOLE
     Indication: ASPERGILLUS INFECTION
     Dates: start: 20151225

REACTIONS (2)
  - Bronchopulmonary aspergillosis [Recovered/Resolved with Sequelae]
  - Brain abscess [Recovered/Resolved with Sequelae]

NARRATIVE: CASE EVENT DATE: 20150801
